FAERS Safety Report 5745583-4 (Version None)
Quarter: 2008Q2

REPORT INFORMATION
  Report Type: 
  Country: None (occurrence: None)
  Receive Date: 20080519
  Receipt Date: 20080307
  Transmission Date: 20081010
  Serious: No
  Sender: FDA-Public Use
  Company Number: TPA2006A01760

PATIENT
  Age: 73 Year
  Sex: Male

DRUGS (3)
  1. ROZEREM [Suspect]
     Dosage: 8 MG, QHS, PER ORAL
     Route: 048
  2. XANAX [Suspect]
  3. KLONOPIN [Suspect]

REACTIONS (1)
  - DRUG INEFFECTIVE [None]
